FAERS Safety Report 24546714 (Version 1)
Quarter: 2024Q4

REPORT INFORMATION
  Report Type: Spontaneous
  Country: US (occurrence: US)
  Receive Date: 20241024
  Receipt Date: 20241024
  Transmission Date: 20250115
  Serious: No
  Sender: APELLIS PHARMACEUTICALS
  Company Number: US-APELLIS-APL-2024-004216

PATIENT

DRUGS (1)
  1. SYFOVRE [Suspect]
     Active Substance: PEGCETACOPLAN
     Indication: Product used for unknown indication
     Route: 031

REACTIONS (4)
  - Eyelid function disorder [Unknown]
  - Lacrimation increased [Unknown]
  - Eye pain [Unknown]
  - Eye irritation [Unknown]
